FAERS Safety Report 5859061-5 (Version None)
Quarter: 2008Q3

REPORT INFORMATION
  Report Type: 
  Country: None (occurrence: None)
  Receive Date: 20080827
  Receipt Date: 20080818
  Transmission Date: 20090109
  Serious: Yes (Hospitalization)
  Sender: FDA-Public Use
  Company Number: US-WYE-H05637408

PATIENT
  Sex: Female

DRUGS (1)
  1. ADVIL LIQUI-GELS [Suspect]
     Indication: DRUG USE FOR UNKNOWN INDICATION
     Dosage: 20 CAPSULES IN THE PAST TWO DAYS
     Route: 048
     Dates: start: 20080816

REACTIONS (2)
  - JOINT SWELLING [None]
  - OVERDOSE [None]
